FAERS Safety Report 6738025-3 (Version None)
Quarter: 2010Q2

REPORT INFORMATION
  Report Type: 
  Country: None (occurrence: None)
  Receive Date: 20100524
  Receipt Date: 20100514
  Transmission Date: 20101027
  Serious: Yes (Other)
  Sender: FDA-Public Use
  Company Number: DE-ASTRAZENECA-2010SE21322

PATIENT
  Age: 55 Year
  Sex: Female

DRUGS (2)
  1. TAMOXIFEN CITRATE [Suspect]
     Indication: ADJUVANT THERAPY
  2. PROSTAGLANDINE ANALOGUE [Concomitant]

REACTIONS (1)
  - MACULOPATHY [None]
